FAERS Safety Report 21958773 (Version 3)
Quarter: 2023Q2

REPORT INFORMATION
  Report Type: Spontaneous
  Country: US (occurrence: US)
  Receive Date: 20230206
  Receipt Date: 20230626
  Transmission Date: 20230721
  Serious: No
  Sender: FDA-Public Use
  Company Number: US-PFIZER INC-2018436157

PATIENT
  Age: 81 Year
  Sex: Female

DRUGS (1)
  1. IBRANCE [Suspect]
     Active Substance: PALBOCICLIB
     Indication: Breast cancer stage IV
     Dosage: 125 MG
     Route: 048

REACTIONS (5)
  - Dizziness [Unknown]
  - Balance disorder [Unknown]
  - Laboratory test abnormal [Unknown]
  - Product taste abnormal [Unknown]
  - Tumour marker increased [Unknown]
